FAERS Safety Report 22588210 (Version 6)
Quarter: 2023Q4

REPORT INFORMATION
  Report Type: Report from Study
  Country: US (occurrence: US)
  Receive Date: 20230612
  Receipt Date: 20231004
  Transmission Date: 20240109
  Serious: Yes (Other)
  Sender: FDA-Public Use
  Company Number: US-002147023-NVSC2023US129876

PATIENT
  Age: 57 Year
  Sex: Female

DRUGS (6)
  1. ENTRESTO [Suspect]
     Active Substance: SACUBITRIL\VALSARTAN
     Indication: Diastolic dysfunction
     Dosage: 0.5 DOSAGE FORM, BID (1/2 TABLET) (49/51 MG)
     Route: 048
     Dates: start: 20230407
  2. ENTRESTO [Suspect]
     Active Substance: SACUBITRIL\VALSARTAN
     Dosage: 1 DOSAGE FORM, BID
     Route: 048
  3. LOSARTAN [Suspect]
     Active Substance: LOSARTAN
     Indication: Product used for unknown indication
     Dosage: UNK
     Route: 065
  4. LISINOPRIL [Suspect]
     Active Substance: LISINOPRIL
     Indication: Product used for unknown indication
     Dosage: 5 MG/KG
     Route: 065
  5. DULOXETINE [Suspect]
     Active Substance: DULOXETINE
     Indication: Fibromyalgia
     Dosage: UNK
     Route: 065
     Dates: start: 202307
  6. UNSPECIFIED INGREDIENT [Concomitant]
     Active Substance: UNSPECIFIED INGREDIENT
     Indication: Product used for unknown indication
     Dosage: UNK
     Route: 065

REACTIONS (22)
  - Cardiac failure [Unknown]
  - Cough [Not Recovered/Not Resolved]
  - Swelling face [Unknown]
  - Anxiety [Unknown]
  - Feeling abnormal [Unknown]
  - Weight increased [Unknown]
  - Malaise [Unknown]
  - Swelling [Unknown]
  - Throat clearing [Unknown]
  - Hypotension [Unknown]
  - Dizziness [Unknown]
  - Tooth infection [Unknown]
  - Temperature intolerance [Unknown]
  - Rash pruritic [Recovering/Resolving]
  - Contraindicated product administered [Unknown]
  - Rash [Recovered/Resolved]
  - Dry skin [Unknown]
  - Wound [Unknown]
  - Drug hypersensitivity [Unknown]
  - Asthenia [Unknown]
  - Underdose [Unknown]
  - Wrong technique in product usage process [Unknown]

NARRATIVE: CASE EVENT DATE: 20230701
